FAERS Safety Report 16306768 (Version 1)
Quarter: 2019Q2

REPORT INFORMATION
  Report Type: Spontaneous
  Country: US (occurrence: US)
  Receive Date: 20190513
  Receipt Date: 20190513
  Transmission Date: 20190711
  Serious: No
  Sender: FDA-Public Use
  Company Number: US-ASTRAZENECA-2019SE70693

PATIENT
  Age: 71 Year
  Sex: Male
  Weight: 83.9 kg

DRUGS (1)
  1. NEXIUM 24HR [Suspect]
     Active Substance: ESOMEPRAZOLE MAGNESIUM
     Indication: HYPERCHLORHYDRIA
     Dosage: 40 MG, ONCE A DAY (TAKE WITH WATER, 20 MG TAKE 2 AT ONE TIME)
     Route: 048

REACTIONS (2)
  - Intentional product use issue [Unknown]
  - Abdominal pain upper [Unknown]
